FAERS Safety Report 7508299-X (Version None)
Quarter: 2011Q2

REPORT INFORMATION
  Report Type: 
  Country: None (occurrence: None)
  Receive Date: 20110527
  Receipt Date: 20110520
  Transmission Date: 20111010
  Serious: Yes (Other)
  Sender: FDA-Public Use
  Company Number: US-TYCO HEALTHCARE/MALLINCKRODT-T201101060

PATIENT

DRUGS (5)
  1. FENTANYL [Concomitant]
     Indication: PAIN
     Dosage: 25 UG/HR PATCHES/ 2 AT A TIME CHANGING THE OLDEST PATCH Q72 HOURS
     Dates: end: 20110420
  2. VIVELLE-DOT [Concomitant]
     Indication: BLOOD OESTROGEN
     Dosage: 0.01 UNK, UNK
  3. XANAX [Concomitant]
     Dosage: 1 MG, QD
  4. LISINOPRIL [Concomitant]
     Indication: BLOOD PRESSURE INCREASED
     Dosage: 10 MG, QD
  5. FENTANYL-100 [Suspect]
     Indication: PAIN
     Dosage: 25 UG/HR PATCHES/2 AT A TIME CHANGING THE OLDEST PATCH Q72 HOURS
     Route: 062
     Dates: start: 20110419, end: 20110427

REACTIONS (7)
  - HYPERHIDROSIS [None]
  - VERTIGO [None]
  - NAUSEA [None]
  - CONFUSIONAL STATE [None]
  - HALLUCINATION [None]
  - FEELING HOT [None]
  - VOMITING [None]
